FAERS Safety Report 26067138 (Version 1)
Quarter: 2025Q4

REPORT INFORMATION
  Report Type: Spontaneous
  Country: JP (occurrence: JP)
  Receive Date: 20251119
  Receipt Date: 20251119
  Transmission Date: 20260117
  Serious: Yes (Hospitalization)
  Sender: WAYLIS THERAPEUTICS LLC
  Company Number: JP-WT-2025-10204

PATIENT
  Age: 3 Decade
  Sex: Female

DRUGS (6)
  1. LUNESTA [Suspect]
     Active Substance: ESZOPICLONE
     Dosage: 8 TABLETS OF 2 MG
     Route: 048
  2. BROMAZEPAM [Concomitant]
     Active Substance: BROMAZEPAM
     Dosage: 14 TABLETS OF 5 MG
     Route: 048
  3. BROTIZOLAM [Concomitant]
     Active Substance: BROTIZOLAM
     Dosage: 8 TABLETS OF 0.25 MG
     Route: 048
  4. ATOMOXETINE [Concomitant]
     Active Substance: ATOMOXETINE
     Dosage: 2 TABLETS OF 40 MG
     Route: 048
  5. LEVOMEPROMAZINE [Concomitant]
     Active Substance: LEVOMEPROMAZINE
     Dosage: 4 TABLETS OF 5 MG
     Route: 048
  6. VALPROATE SODIUM [Concomitant]
     Active Substance: VALPROATE SODIUM
     Dosage: 6 TABLETS OF 200 MG
     Route: 048

REACTIONS (5)
  - Muscular weakness [Unknown]
  - Intentional overdose [Unknown]
  - Suicide attempt [Unknown]
  - Intentional self-injury [Unknown]
  - Toxicity to various agents [Unknown]
